FAERS Safety Report 4481366-3 (Version None)
Quarter: 2004Q3

REPORT INFORMATION
  Report Type: 
  Country: None (occurrence: None)
  Receive Date: 20040923
  Receipt Date: 20040722
  Transmission Date: 20050211
  Serious: No
  Sender: FDA-Public Use
  Company Number: USA031050885

PATIENT
  Age: 78 Year
  Sex: Female
  Weight: 47 kg

DRUGS (11)
  1. FORTEO [Suspect]
     Indication: OSTEOPOROSIS
     Dosage: 20 UG/DAY
     Dates: start: 20030901, end: 20030919
  2. NORVASC [Concomitant]
  3. PRILOSEC [Concomitant]
  4. IRON [Concomitant]
  5. PREDNISONE [Concomitant]
  6. ATACAND [Concomitant]
  7. ARAVA [Concomitant]
  8. ZETIA [Concomitant]
  9. NEURONTIN [Concomitant]
  10. LEVOTHYROXINE [Concomitant]
  11. TRICOR [Concomitant]

REACTIONS (11)
  - ASTHENIA [None]
  - CONSTIPATION [None]
  - DEHYDRATION [None]
  - DIFFICULTY IN WALKING [None]
  - FATIGUE [None]
  - FEEDING DISORDER [None]
  - FEELING ABNORMAL [None]
  - FULL BLOOD COUNT ABNORMAL [None]
  - HYPERSENSITIVITY [None]
  - NAUSEA [None]
  - WEIGHT DECREASED [None]
